FAERS Safety Report 7831463-7 (Version None)
Quarter: 2011Q3

REPORT INFORMATION
  Report Type: 
  Country: None (occurrence: None)
  Receive Date: 20110901
  Receipt Date: 20101214
  Transmission Date: 20111222
  Serious: Yes (Hospitalization, Disabling, Other)
  Sender: FDA-Public Use
  Company Number: 259961USA

PATIENT
  Sex: Female

DRUGS (5)
  1. METOCLOPRAMIDE [Suspect]
     Indication: GASTROINTESTINAL DISORDER
     Dosage: 30 MG (10 MG,3 IN 1 D)
  2. METOCLOPRAMIDE HYDROCHLORIDE [Suspect]
     Indication: NAUSEA
     Dosage: 30 MG (10 MG,3 IN 1 D)
  3. METOCLOPRAMIDE HYDROCHLORIDE [Suspect]
     Indication: GASTROINTESTINAL DISORDER
     Dosage: 30 MG (10 MG,3 IN 1 D)
  4. METOCLOPRAMIDE [Suspect]
     Indication: GASTROINTESTINAL DISORDER
     Dosage: 30 MG (10 MG,3 IN 1 D)
  5. METOCLOPRAMIDE [Suspect]
     Indication: NAUSEA
     Dosage: 30 MG (10 MG,3 IN 1 D)

REACTIONS (2)
  - EXTRAPYRAMIDAL DISORDER [None]
  - NERVOUS SYSTEM DISORDER [None]
